FAERS Safety Report 15302422 (Version 1)
Quarter: 2018Q3

REPORT INFORMATION
  Report Type: Spontaneous
  Country: SE (occurrence: SE)
  Receive Date: 20180821
  Receipt Date: 20180821
  Transmission Date: 20181010
  Serious: Yes (Hospitalization)
  Sender: FDA-Public Use
  Company Number: SE-TEVA-2018-SE-944526

PATIENT
  Age: 62 Year
  Sex: Male

DRUGS (7)
  1. TROMBYL 75 MG TABLETT [Concomitant]
     Active Substance: ASPIRIN
  2. METFORMIN [Suspect]
     Active Substance: METFORMIN HYDROCHLORIDE
     Indication: TYPE 2 DIABETES MELLITUS
     Dosage: 1000 MILLIGRAM DAILY;
     Route: 048
     Dates: end: 201806
  3. LANTUS [Concomitant]
     Active Substance: INSULIN GLARGINE
  4. LOSARTAN. [Concomitant]
     Active Substance: LOSARTAN
  5. JARDIANCE 10 MG FILMDRAGERAD TABLETT [Concomitant]
     Dosage: 10 MILLIGRAM DAILY;
     Route: 048
     Dates: end: 201806
  6. NOVORAPID [Concomitant]
     Active Substance: INSULIN ASPART
  7. GABAPENTIN. [Concomitant]
     Active Substance: GABAPENTIN

REACTIONS (1)
  - Acute kidney injury [Recovered/Resolved]

NARRATIVE: CASE EVENT DATE: 20180618
